FAERS Safety Report 22323321 (Version 1)
Quarter: 2023Q2

REPORT INFORMATION
  Report Type: Spontaneous
  Country: US (occurrence: US)
  Receive Date: 20230516
  Receipt Date: 20230516
  Transmission Date: 20230722
  Serious: Yes (Hospitalization, Other)
  Sender: FDA-Public Use
  Company Number: None

PATIENT
  Sex: Male
  Weight: 6 kg

DRUGS (6)
  1. HYDROCORTISONE [Suspect]
     Active Substance: HYDROCORTISONE
     Indication: Product used for unknown indication
     Dosage: STRESS DOSE STEROIDS
     Route: 065
  2. VECURONIUM [Suspect]
     Active Substance: VECURONIUM BROMIDE
     Indication: Product used for unknown indication
     Dosage: 0.3 MILLIGRAM/KILOGRAM, EVERY HOUR
     Route: 065
  3. VECURONIUM [Suspect]
     Active Substance: VECURONIUM BROMIDE
     Dosage: 0.06 MILLIGRAM/KILOGRAM, EVERY HOUR
     Route: 065
  4. FENTANYL [Concomitant]
     Active Substance: FENTANYL
     Indication: Analgesic therapy
     Dosage: 2 MICROGRAM/KILOGRAM, EVERY HOUR, TITRATED
     Route: 065
  5. FENTANYL [Concomitant]
     Active Substance: FENTANYL
     Indication: Sedation
     Dosage: CONTINUOUS
     Route: 065
  6. EPINEPHRINE [Concomitant]
     Active Substance: EPINEPHRINE
     Indication: Bradycardia
     Dosage: 3 DOSES OF 0.01 MG/KG OF EPINEPHRINE
     Route: 065

REACTIONS (1)
  - Neuromuscular block prolonged [Recovered/Resolved]
